FAERS Safety Report 14750452 (Version 1)
Quarter: 2018Q2

REPORT INFORMATION
  Report Type: Spontaneous
  Country: US (occurrence: US)
  Receive Date: 20180412
  Receipt Date: 20180412
  Transmission Date: 20180711
  Serious: No
  Sender: FDA-Public Use
  Company Number: US-BIOGEN-2015BI116910

PATIENT
  Sex: Female

DRUGS (1)
  1. PLEGRIDY [Suspect]
     Active Substance: PEGINTERFERON BETA-1A
     Indication: MULTIPLE SCLEROSIS
     Route: 065
     Dates: start: 20150724

REACTIONS (4)
  - Drug dose omission [Unknown]
  - Injection site erythema [Not Recovered/Not Resolved]
  - Device malfunction [Unknown]
  - Injection site reaction [Not Recovered/Not Resolved]
